FAERS Safety Report 4793897-7 (Version None)
Quarter: 2005Q4

REPORT INFORMATION
  Report Type: 
  Country: None (occurrence: None)
  Receive Date: 20051011
  Receipt Date: 20051003
  Transmission Date: 20060501
  Serious: Yes (Hospitalization)
  Sender: FDA-Public Use
  Company Number: US-MERCK-0510USA02299

PATIENT
  Age: 55 Year
  Sex: Male
  Weight: 85 kg

DRUGS (6)
  1. VIOXX [Suspect]
     Indication: OSTEOARTHRITIS
     Route: 048
     Dates: start: 20020701, end: 20020901
  2. BEXTRA [Concomitant]
     Route: 065
  3. GLUCOPHAGE [Concomitant]
     Route: 065
  4. CELEBREX [Concomitant]
     Route: 065
  5. LIPITOR [Concomitant]
     Route: 065
  6. ACCUPRIL [Concomitant]
     Route: 065

REACTIONS (2)
  - ADVERSE EVENT [None]
  - CARPAL TUNNEL SYNDROME [None]
